FAERS Safety Report 17635346 (Version 2)
Quarter: 2020Q2

REPORT INFORMATION
  Report Type: Spontaneous
  Country: CA (occurrence: CA)
  Receive Date: 20200406
  Receipt Date: 20200512
  Transmission Date: 20200713
  Serious: Yes (Hospitalization, Other)
  Sender: FDA-Public Use
  Company Number: CA-SAMSUNG BIOEPIS-SB-2020-11114

PATIENT
  Age: 71 Year
  Sex: Female
  Weight: 60 kg

DRUGS (1)
  1. INFLIXIMAB [Suspect]
     Active Substance: INFLIXIMAB
     Indication: COLITIS ULCERATIVE
     Route: 042

REACTIONS (16)
  - Condition aggravated [Unknown]
  - Pruritus [Unknown]
  - Drug level decreased [Unknown]
  - Blood pressure fluctuation [Unknown]
  - Colitis ulcerative [Unknown]
  - Blood pressure increased [Unknown]
  - Inappropriate schedule of product administration [Unknown]
  - Weight increased [Unknown]
  - Incorrect dose administered [Unknown]
  - Off label use [Unknown]
  - Cataract [Unknown]
  - Localised infection [Unknown]
  - Rash [Unknown]
  - Heart rate irregular [Unknown]
  - Therapeutic product effect incomplete [Unknown]
  - Intentional product use issue [Unknown]
